FAERS Safety Report 9652578 (Version 2)
Quarter: 2014Q1

REPORT INFORMATION
  Report Type: Spontaneous
  Country: US (occurrence: US)
  Receive Date: 20131029
  Receipt Date: 20140227
  Transmission Date: 20141002
  Serious: Yes (Other)
  Sender: FDA-Public Use
  Company Number: US-GLAXOSMITHKLINE-A1046626A

PATIENT
  Age: 62 Year
  Sex: Male

DRUGS (1)
  1. ABREVA [Suspect]
     Indication: ORAL HERPES
     Route: 065
     Dates: start: 20131018, end: 20131022

REACTIONS (3)
  - Abscess [Unknown]
  - Oral herpes [Not Recovered/Not Resolved]
  - Condition aggravated [Unknown]
